FAERS Safety Report 6511231-9 (Version None)
Quarter: 2009Q4

REPORT INFORMATION
  Report Type: 
  Country: None (occurrence: None)
  Receive Date: 20091222
  Receipt Date: 20090227
  Transmission Date: 20100525
  Serious: No
  Sender: FDA-Public Use
  Company Number: BR-ASTRAZENECA-2009UW05633

PATIENT
  Age: 61 Year
  Sex: Female
  Weight: 65 kg

DRUGS (5)
  1. CRESTOR [Suspect]
     Indication: HYPERCHOLESTEROLAEMIA
     Route: 048
     Dates: start: 20051101
  2. NAPRIX [Concomitant]
  3. VASPLEN [Concomitant]
  4. DIUPRESS [Concomitant]
     Indication: HYPERTENSION
  5. LOPIGREL [Concomitant]

REACTIONS (3)
  - CONSTIPATION [None]
  - FLATULENCE [None]
  - NAUSEA [None]
